FAERS Safety Report 25018173 (Version 1)
Quarter: 2025Q1

REPORT INFORMATION
  Report Type: Spontaneous
  Country: US (occurrence: US)
  Receive Date: 20250227
  Receipt Date: 20250227
  Transmission Date: 20250408
  Serious: No
  Sender: KYOWA
  Company Number: US-KYOWAKIRIN-2025KK001243

PATIENT

DRUGS (2)
  1. POTELIGEO [Suspect]
     Active Substance: MOGAMULIZUMAB-KPKC
     Indication: Cutaneous T-cell lymphoma
     Dosage: UNK, 1X/WEEK, FOR 5 WEEKS
     Route: 065
     Dates: start: 20240708, end: 20240819
  2. POTELIGEO [Suspect]
     Active Substance: MOGAMULIZUMAB-KPKC
     Indication: Cutaneous T-cell lymphoma
     Dosage: UNK, 1X/2 WEEKS (6TH DOSE)
     Route: 065
     Dates: start: 20240819, end: 202409

REACTIONS (1)
  - Drug eruption [Not Recovered/Not Resolved]

NARRATIVE: CASE EVENT DATE: 20240729
